FAERS Safety Report 9414476 (Version 2)
Quarter: 2013Q3

REPORT INFORMATION
  Report Type: Spontaneous
  Country: US (occurrence: US)
  Receive Date: 20130723
  Receipt Date: 20130821
  Transmission Date: 20140515
  Serious: No
  Sender: FDA-Public Use
  Company Number: US-009507513-1307USA012070

PATIENT
  Age: 20 Year
  Sex: Female

DRUGS (1)
  1. CLARITIN-D-12 [Suspect]
     Indication: SEASONAL ALLERGY
     Dosage: 5 MG, PRN
     Route: 048
     Dates: start: 20130713

REACTIONS (1)
  - Tongue discolouration [Not Recovered/Not Resolved]
